FAERS Safety Report 11166266 (Version 1)
Quarter: 2015Q2

REPORT INFORMATION
  Report Type: Spontaneous
  Country: CD (occurrence: CD)
  Receive Date: 20150605
  Receipt Date: 20150605
  Transmission Date: 20150821
  Serious: Yes (Hospitalization, Other)
  Sender: FDA-Public Use
  Company Number: CD-009507513-1505COD014036

PATIENT
  Age: 57 Year
  Sex: Male
  Weight: 77 kg

DRUGS (1)
  1. IVERMECTIN. [Suspect]
     Active Substance: IVERMECTIN
     Indication: ONCHOCERCIASIS
     Dosage: 4 TABLETS, ONCE
     Route: 048
     Dates: start: 20141017

REACTIONS (6)
  - Urinary incontinence [Recovered/Resolved]
  - Coma [Recovered/Resolved]
  - Toxic encephalopathy [Recovered/Resolved]
  - Pyrexia [Recovered/Resolved]
  - Vertigo [Recovered/Resolved]
  - Asthenia [Recovered/Resolved]

NARRATIVE: CASE EVENT DATE: 20141018
